FAERS Safety Report 8495038 (Version 3)
Quarter: 2013Q2

REPORT INFORMATION
  Report Type: Report from Study
  Country: CA (occurrence: CA)
  Receive Date: 20120405
  Receipt Date: 20130510
  Transmission Date: 20140414
  Serious: Yes (Other)
  Sender: FDA-Public Use
  Company Number: PHHY2012CA027356

PATIENT
  Age: 57 Year
  Sex: Male

DRUGS (3)
  1. ACLASTA [Suspect]
     Indication: OSTEOPOROSIS
     Dosage: 5 MG, UNK
     Route: 042
     Dates: start: 20110517
  2. ACLASTA [Suspect]
     Dosage: 5 MG, UNK
     Route: 042
     Dates: start: 20120509
  3. ACLASTA [Suspect]
     Dosage: 5 MG, UNK
     Route: 042
     Dates: start: 20130506

REACTIONS (9)
  - Rib fracture [Unknown]
  - Intervertebral disc displacement [Unknown]
  - Back pain [Unknown]
  - Back injury [Not Recovered/Not Resolved]
  - Accident at work [Unknown]
  - Road traffic accident [Unknown]
  - Lower limb fracture [Unknown]
  - Gait disturbance [Unknown]
  - Pain in extremity [Unknown]
